FAERS Safety Report 6204548-9 (Version None)
Quarter: 2009Q2

REPORT INFORMATION
  Report Type: 
  Country: None (occurrence: None)
  Receive Date: 20090527
  Receipt Date: 20090515
  Transmission Date: 20091009
  Serious: Yes (Life-Threatening)
  Sender: FDA-Public Use
  Company Number: JP-SANOFI-SYNTHELABO-A01200709457

PATIENT
  Age: 50 Year
  Sex: Male

DRUGS (4)
  1. ISOVORIN [Suspect]
     Dosage: 100 MG/M2
     Route: 041
     Dates: start: 20070809, end: 20070809
  2. ELPLAT [Suspect]
     Dosage: 140 MG
     Route: 041
     Dates: start: 20070809, end: 20070809
  3. FLUOROURACIL [Concomitant]
     Dosage: 400 MG/M2
     Route: 040
     Dates: start: 20070727, end: 20070727
  4. FLUOROURACIL [Concomitant]
     Dosage: 600 MG/M2
     Route: 041
     Dates: start: 20070727, end: 20070728

REACTIONS (2)
  - ANAPHYLACTIC SHOCK [None]
  - RESPIRATORY ARREST [None]
